FAERS Safety Report 6143553-8 (Version None)
Quarter: 2009Q2

REPORT INFORMATION
  Report Type: 
  Country: None (occurrence: None)
  Receive Date: 20090403
  Receipt Date: 20090324
  Transmission Date: 20091009
  Serious: Yes (Other)
  Sender: FDA-Public Use
  Company Number: US-PFIZER INC-2009191220

PATIENT
  Sex: Female

DRUGS (6)
  1. DETROL LA [Suspect]
     Indication: HYPERTONIC BLADDER
     Dates: start: 20090201
  2. AMLODIPINE BESYLATE [Suspect]
     Dates: start: 20050501
  3. PLAVIX [Suspect]
     Dates: start: 20050501
  4. BRETHINE [Concomitant]
     Dosage: UNK
  5. DIPHENHYDRAMINE [Concomitant]
     Dosage: UNK
  6. FELDENE [Concomitant]

REACTIONS (13)
  - CARDIOVASCULAR DISORDER [None]
  - CONTUSION [None]
  - DIZZINESS [None]
  - DRUG INEFFECTIVE [None]
  - DYSGEUSIA [None]
  - DYSPEPSIA [None]
  - HYPERTONIC BLADDER [None]
  - OEDEMA PERIPHERAL [None]
  - ROAD TRAFFIC ACCIDENT [None]
  - SCIATIC NERVE INJURY [None]
  - SWOLLEN TONGUE [None]
  - VISUAL IMPAIRMENT [None]
  - WEIGHT INCREASED [None]
